FAERS Safety Report 8315516-5 (Version None)
Quarter: 2012Q2

REPORT INFORMATION
  Report Type: 
  Country: None (occurrence: None)
  Receive Date: 20120426
  Receipt Date: 20120418
  Transmission Date: 20120825
  Serious: Yes (Death, Hospitalization)
  Sender: FDA-Public Use
  Company Number: US-MILLENNIUM PHARMACEUTICALS, INC.-2012-02178

PATIENT
  Sex: Female

DRUGS (2)
  1. MELPHALAN HYDROCHLORIDE [Suspect]
     Indication: MULTIPLE MYELOMA
     Dosage: 10 MG, CYCLIC
     Route: 048
     Dates: start: 20110503, end: 20111029
  2. VELCADE [Suspect]
     Indication: MULTIPLE MYELOMA
     Dosage: 2 MG, 1/WEEK
     Route: 042
     Dates: start: 20110503, end: 20111029

REACTIONS (3)
  - DEHYDRATION [None]
  - GASTROINTESTINAL PERFORATION [None]
  - FAILURE TO THRIVE [None]
